FAERS Safety Report 6384554-4 (Version None)
Quarter: 2009Q4

REPORT INFORMATION
  Report Type: 
  Country: None (occurrence: None)
  Receive Date: 20091001
  Receipt Date: 20090923
  Transmission Date: 20100525
  Serious: Yes (Hospitalization, Other)
  Sender: FDA-Public Use
  Company Number: CHPA2009BR19282

PATIENT
  Sex: Female
  Weight: 62 kg

DRUGS (3)
  1. NUPERCAINAL (NCH) [Suspect]
     Indication: PROCTALGIA
     Dosage: UNK
     Dates: start: 20060101
  2. DIAZEPAM [Concomitant]
     Indication: SLEEP DISORDER
     Dosage: 10 MG, QHS
     Route: 048
     Dates: start: 20090701
  3. ANAFRANIL [Concomitant]
     Indication: DEPRESSION
     Dosage: 75 MG, QHS
     Route: 048
     Dates: start: 20090701

REACTIONS (14)
  - ANAL HAEMORRHAGE [None]
  - ANORECTAL DISCOMFORT [None]
  - ARTIFICIAL MENOPAUSE [None]
  - ENDOMETRIOSIS [None]
  - FAECES HARD [None]
  - HAEMORRHAGE [None]
  - HAIR COLOUR CHANGES [None]
  - HOT FLUSH [None]
  - INJECTION SITE DISCOLOURATION [None]
  - INJECTION SITE PAIN [None]
  - PROCTALGIA [None]
  - SWELLING [None]
  - UTERINE HAEMORRHAGE [None]
  - VULVOVAGINAL DRYNESS [None]
